FAERS Safety Report 5649188-5 (Version None)
Quarter: 2008Q1

REPORT INFORMATION
  Report Type: 
  Country: None (occurrence: None)
  Receive Date: 20080131
  Receipt Date: 20071006
  Transmission Date: 20080703
  Serious: No
  Sender: FDA-Public Use
  Company Number: US200709006291

PATIENT
  Age: 60 Year
  Sex: Female
  Weight: 101.1 kg

DRUGS (6)
  1. BYETTA [Suspect]
     Indication: TYPE 2 DIABETES MELLITUS
     Dosage: 5 UG, 2/D, SUBCUTANEOUS ; 5 UG, EACH MORNING, SUBCUTANEOUS
     Route: 058
     Dates: start: 20070901, end: 20070901
  2. BYETTA [Suspect]
     Indication: TYPE 2 DIABETES MELLITUS
     Dosage: 5 UG, 2/D, SUBCUTANEOUS ; 5 UG, EACH MORNING, SUBCUTANEOUS
     Route: 058
     Dates: start: 20070901
  3. BYETTA [Suspect]
     Dosage: 5 UG, DAILY (1/D), SUBCUTANEOUS
     Route: 058
     Dates: start: 20070901
  4. METFORMIN HCL [Concomitant]
  5. ACTOS /USA/ (PIOGLITAZONE HYDROCHLORIDE) [Concomitant]
  6. PROTONIX [Concomitant]

REACTIONS (6)
  - BACK PAIN [None]
  - BLOOD GLUCOSE DECREASED [None]
  - FEELING ABNORMAL [None]
  - FEELING JITTERY [None]
  - TREMOR [None]
  - WEIGHT DECREASED [None]
